FAERS Safety Report 8905349 (Version 2)
Quarter: 2012Q4

REPORT INFORMATION
  Report Type: 
  Country: CN (occurrence: CN)
  Receive Date: 20121112
  Receipt Date: 20121206
  Transmission Date: 20130627
  Serious: Yes (Hospitalization)
  Sender: FDA-Public Use
  Company Number: CN-BRISTOL-MYERS SQUIBB COMPANY-17089145

PATIENT
  Age: 56 Year
  Sex: Male

DRUGS (3)
  1. BARACLUDE [Suspect]
     Route: 048
     Dates: start: 201209, end: 201210
  2. DIAMMONIUM GLYCYRRHIZINATE [Concomitant]
     Route: 048
  3. BERBAMINE [Concomitant]
     Dosage: 1 df: 4 pills

REACTIONS (5)
  - Rash pruritic [Recovered/Resolved]
  - Oedema peripheral [Unknown]
  - Skin exfoliation [Unknown]
  - Tinea manuum [Unknown]
  - Tinea pedis [Unknown]
